FAERS Safety Report 24805485 (Version 3)
Quarter: 2025Q2

REPORT INFORMATION
  Report Type: Spontaneous
  Country: CA (occurrence: CA)
  Receive Date: 20250103
  Receipt Date: 20250618
  Transmission Date: 20250717
  Serious: Yes (Hospitalization, Other)
  Sender: MYLAN
  Company Number: CA-MYLANLABS-2024M1115814

PATIENT
  Age: 65 Year
  Sex: Female

DRUGS (192)
  1. GABAPENTIN [Suspect]
     Active Substance: GABAPENTIN
     Indication: Depression
  2. GABAPENTIN [Suspect]
     Active Substance: GABAPENTIN
     Route: 065
  3. GABAPENTIN [Suspect]
     Active Substance: GABAPENTIN
     Route: 065
  4. GABAPENTIN [Suspect]
     Active Substance: GABAPENTIN
  5. VENLAFAXINE HCL [Suspect]
     Active Substance: VENLAFAXINE HYDROCHLORIDE
     Indication: Depression
  6. VENLAFAXINE HCL [Suspect]
     Active Substance: VENLAFAXINE HYDROCHLORIDE
     Indication: Major depression
     Route: 065
  7. VENLAFAXINE HCL [Suspect]
     Active Substance: VENLAFAXINE HYDROCHLORIDE
     Route: 065
  8. VENLAFAXINE HCL [Suspect]
     Active Substance: VENLAFAXINE HYDROCHLORIDE
  9. VENLAFAXINE HYDROCHLORIDE [Suspect]
     Active Substance: VENLAFAXINE HYDROCHLORIDE
     Indication: Major depression
  10. VENLAFAXINE HYDROCHLORIDE [Suspect]
     Active Substance: VENLAFAXINE HYDROCHLORIDE
     Route: 065
  11. VENLAFAXINE HYDROCHLORIDE [Suspect]
     Active Substance: VENLAFAXINE HYDROCHLORIDE
     Route: 065
  12. VENLAFAXINE HYDROCHLORIDE [Suspect]
     Active Substance: VENLAFAXINE HYDROCHLORIDE
  13. FLUVOXAMINE [Suspect]
     Active Substance: FLUVOXAMINE
     Indication: Depression
  14. FLUVOXAMINE [Suspect]
     Active Substance: FLUVOXAMINE
     Route: 065
  15. FLUVOXAMINE [Suspect]
     Active Substance: FLUVOXAMINE
     Route: 065
  16. FLUVOXAMINE [Suspect]
     Active Substance: FLUVOXAMINE
  17. VORTIOXETINE [Suspect]
     Active Substance: VORTIOXETINE
     Indication: Depression
     Dosage: 10 MILLIGRAM, QD (DAILY)
  18. VORTIOXETINE [Suspect]
     Active Substance: VORTIOXETINE
     Indication: Major depression
     Dosage: 10 MILLIGRAM, QD (DAILY)
     Route: 065
  19. VORTIOXETINE [Suspect]
     Active Substance: VORTIOXETINE
     Dosage: 10 MILLIGRAM, QD (DAILY)
     Route: 065
  20. VORTIOXETINE [Suspect]
     Active Substance: VORTIOXETINE
     Dosage: 10 MILLIGRAM, QD (DAILY)
  21. PANTOPRAZOLE SODIUM [Suspect]
     Active Substance: PANTOPRAZOLE SODIUM
     Indication: Gastrooesophageal reflux disease
     Dosage: 40 MILLIGRAM, QD (ONCE A DAY)
  22. PANTOPRAZOLE SODIUM [Suspect]
     Active Substance: PANTOPRAZOLE SODIUM
     Dosage: 40 MILLIGRAM, QD (ONCE A DAY)
     Route: 065
  23. PANTOPRAZOLE SODIUM [Suspect]
     Active Substance: PANTOPRAZOLE SODIUM
     Dosage: 40 MILLIGRAM, QD (ONCE A DAY)
     Route: 065
  24. PANTOPRAZOLE SODIUM [Suspect]
     Active Substance: PANTOPRAZOLE SODIUM
     Dosage: 40 MILLIGRAM, QD (ONCE A DAY)
  25. BUPROPION [Suspect]
     Active Substance: BUPROPION
     Indication: Depression
  26. BUPROPION [Suspect]
     Active Substance: BUPROPION
  27. BUPROPION [Suspect]
     Active Substance: BUPROPION
     Route: 065
  28. BUPROPION [Suspect]
     Active Substance: BUPROPION
     Route: 065
  29. BUPROPION [Suspect]
     Active Substance: BUPROPION
     Dosage: 450 MILLIGRAM, QD (ONCE DAILY)
  30. BUPROPION [Suspect]
     Active Substance: BUPROPION
     Dosage: 450 MILLIGRAM, QD (ONCE DAILY)
  31. BUPROPION [Suspect]
     Active Substance: BUPROPION
     Dosage: 450 MILLIGRAM, QD (ONCE DAILY)
     Route: 065
  32. BUPROPION [Suspect]
     Active Substance: BUPROPION
     Dosage: 450 MILLIGRAM, QD (ONCE DAILY)
     Route: 065
  33. BUPROPION [Suspect]
     Active Substance: BUPROPION
     Dosage: 400 MILLIGRAM, QD (ONCE DAILY)
  34. BUPROPION [Suspect]
     Active Substance: BUPROPION
     Dosage: 400 MILLIGRAM, QD (ONCE DAILY)
     Route: 065
  35. BUPROPION [Suspect]
     Active Substance: BUPROPION
     Dosage: 400 MILLIGRAM, QD (ONCE DAILY)
  36. BUPROPION [Suspect]
     Active Substance: BUPROPION
     Dosage: 400 MILLIGRAM, QD (ONCE DAILY)
     Route: 065
  37. LEMBOREXANT [Suspect]
     Active Substance: LEMBOREXANT
     Indication: Insomnia
     Route: 048
  38. LEMBOREXANT [Suspect]
     Active Substance: LEMBOREXANT
     Indication: Depression
  39. LEMBOREXANT [Suspect]
     Active Substance: LEMBOREXANT
     Indication: Major depression
  40. LEMBOREXANT [Suspect]
     Active Substance: LEMBOREXANT
     Route: 048
  41. LEMBOREXANT [Suspect]
     Active Substance: LEMBOREXANT
     Route: 065
  42. LEMBOREXANT [Suspect]
     Active Substance: LEMBOREXANT
  43. LEMBOREXANT [Suspect]
     Active Substance: LEMBOREXANT
  44. LEMBOREXANT [Suspect]
     Active Substance: LEMBOREXANT
     Route: 065
  45. PRAMIPEXOLE [Suspect]
     Active Substance: PRAMIPEXOLE
     Indication: Depression
     Dosage: 0.25 MILLIGRAM, BID (TWICE A DAY)
     Route: 065
  46. PRAMIPEXOLE [Suspect]
     Active Substance: PRAMIPEXOLE
     Indication: Major depression
     Dosage: 0.25 MILLIGRAM, BID (TWICE A DAY)
  47. PRAMIPEXOLE [Suspect]
     Active Substance: PRAMIPEXOLE
     Dosage: 0.25 MILLIGRAM, BID (TWICE A DAY)
  48. PRAMIPEXOLE [Suspect]
     Active Substance: PRAMIPEXOLE
     Dosage: 0.25 MILLIGRAM, BID (TWICE A DAY)
     Route: 065
  49. PRAMIPEXOLE [Suspect]
     Active Substance: PRAMIPEXOLE
     Dosage: 0.5 MILLIGRAM, BID (TWICE A DAY)
  50. PRAMIPEXOLE [Suspect]
     Active Substance: PRAMIPEXOLE
     Dosage: 0.5 MILLIGRAM, BID (TWICE A DAY)
  51. PRAMIPEXOLE [Suspect]
     Active Substance: PRAMIPEXOLE
     Dosage: 0.5 MILLIGRAM, BID (TWICE A DAY)
     Route: 065
  52. PRAMIPEXOLE [Suspect]
     Active Substance: PRAMIPEXOLE
     Dosage: 0.5 MILLIGRAM, BID (TWICE A DAY)
     Route: 065
  53. PRAMIPEXOLE [Suspect]
     Active Substance: PRAMIPEXOLE
     Route: 065
  54. PRAMIPEXOLE [Suspect]
     Active Substance: PRAMIPEXOLE
  55. PRAMIPEXOLE [Suspect]
     Active Substance: PRAMIPEXOLE
  56. PRAMIPEXOLE [Suspect]
     Active Substance: PRAMIPEXOLE
     Route: 065
  57. ESCITALOPRAM [Suspect]
     Active Substance: ESCITALOPRAM OXALATE
     Indication: Depression
  58. ESCITALOPRAM [Suspect]
     Active Substance: ESCITALOPRAM OXALATE
     Route: 065
  59. ESCITALOPRAM [Suspect]
     Active Substance: ESCITALOPRAM OXALATE
     Route: 065
  60. ESCITALOPRAM [Suspect]
     Active Substance: ESCITALOPRAM OXALATE
  61. APIXABAN [Suspect]
     Active Substance: APIXABAN
     Indication: Depression
     Dosage: 5 MILLIGRAM, BID
     Route: 065
  62. APIXABAN [Suspect]
     Active Substance: APIXABAN
     Indication: Deep vein thrombosis
     Dosage: 5 MILLIGRAM, BID
  63. APIXABAN [Suspect]
     Active Substance: APIXABAN
     Indication: Anticoagulant therapy
     Dosage: 5 MILLIGRAM, BID
  64. APIXABAN [Suspect]
     Active Substance: APIXABAN
     Dosage: 5 MILLIGRAM, BID
     Route: 065
  65. APIXABAN [Suspect]
     Active Substance: APIXABAN
     Route: 065
  66. APIXABAN [Suspect]
     Active Substance: APIXABAN
  67. APIXABAN [Suspect]
     Active Substance: APIXABAN
  68. APIXABAN [Suspect]
     Active Substance: APIXABAN
     Route: 065
  69. BREXPIPRAZOLE [Suspect]
     Active Substance: BREXPIPRAZOLE
     Indication: Depression
  70. BREXPIPRAZOLE [Suspect]
     Active Substance: BREXPIPRAZOLE
     Indication: Insomnia
  71. BREXPIPRAZOLE [Suspect]
     Active Substance: BREXPIPRAZOLE
     Indication: Major depression
     Route: 065
  72. BREXPIPRAZOLE [Suspect]
     Active Substance: BREXPIPRAZOLE
     Route: 065
  73. BREXPIPRAZOLE [Suspect]
     Active Substance: BREXPIPRAZOLE
  74. BREXPIPRAZOLE [Suspect]
     Active Substance: BREXPIPRAZOLE
  75. BREXPIPRAZOLE [Suspect]
     Active Substance: BREXPIPRAZOLE
     Route: 065
  76. BREXPIPRAZOLE [Suspect]
     Active Substance: BREXPIPRAZOLE
     Route: 065
  77. LAMOTRIGINE [Suspect]
     Active Substance: LAMOTRIGINE
     Indication: Depression
     Dosage: 300 MILLIGRAM, QD (ONCE DAILY)
  78. LAMOTRIGINE [Suspect]
     Active Substance: LAMOTRIGINE
     Indication: Major depression
     Dosage: 300 MILLIGRAM, QD (ONCE DAILY)
     Route: 065
  79. LAMOTRIGINE [Suspect]
     Active Substance: LAMOTRIGINE
     Dosage: 300 MILLIGRAM, QD (ONCE DAILY)
     Route: 065
  80. LAMOTRIGINE [Suspect]
     Active Substance: LAMOTRIGINE
     Dosage: 300 MILLIGRAM, QD (ONCE DAILY)
  81. LURASIDONE HYDROCHLORIDE [Suspect]
     Active Substance: LURASIDONE HYDROCHLORIDE
     Indication: Depression
     Dosage: 20 MILLIGRAM, QD (DAILY)
  82. LURASIDONE HYDROCHLORIDE [Suspect]
     Active Substance: LURASIDONE HYDROCHLORIDE
     Dosage: 20 MILLIGRAM, QD (DAILY)
  83. LURASIDONE HYDROCHLORIDE [Suspect]
     Active Substance: LURASIDONE HYDROCHLORIDE
     Dosage: 20 MILLIGRAM, QD (DAILY)
     Route: 065
  84. LURASIDONE HYDROCHLORIDE [Suspect]
     Active Substance: LURASIDONE HYDROCHLORIDE
     Dosage: 20 MILLIGRAM, QD (DAILY)
     Route: 065
  85. LURASIDONE HYDROCHLORIDE [Suspect]
     Active Substance: LURASIDONE HYDROCHLORIDE
     Dosage: 40 MILLIGRAM, QD (ONCE A DAY)
  86. LURASIDONE HYDROCHLORIDE [Suspect]
     Active Substance: LURASIDONE HYDROCHLORIDE
     Dosage: 40 MILLIGRAM, QD (ONCE A DAY)
  87. LURASIDONE HYDROCHLORIDE [Suspect]
     Active Substance: LURASIDONE HYDROCHLORIDE
     Dosage: 40 MILLIGRAM, QD (ONCE A DAY)
     Route: 065
  88. LURASIDONE HYDROCHLORIDE [Suspect]
     Active Substance: LURASIDONE HYDROCHLORIDE
     Dosage: 40 MILLIGRAM, QD (ONCE A DAY)
     Route: 065
  89. CANNABIS SATIVA FLOWERING TOP [Suspect]
     Active Substance: CANNABIS SATIVA FLOWERING TOP
     Indication: Insomnia
  90. CANNABIS SATIVA FLOWERING TOP [Suspect]
     Active Substance: CANNABIS SATIVA FLOWERING TOP
     Route: 065
  91. CANNABIS SATIVA FLOWERING TOP [Suspect]
     Active Substance: CANNABIS SATIVA FLOWERING TOP
     Route: 065
  92. CANNABIS SATIVA FLOWERING TOP [Suspect]
     Active Substance: CANNABIS SATIVA FLOWERING TOP
  93. CLOMIPRAMINE [Suspect]
     Active Substance: CLOMIPRAMINE
     Indication: Depression
  94. CLOMIPRAMINE [Suspect]
     Active Substance: CLOMIPRAMINE
     Route: 065
  95. CLOMIPRAMINE [Suspect]
     Active Substance: CLOMIPRAMINE
     Route: 065
  96. CLOMIPRAMINE [Suspect]
     Active Substance: CLOMIPRAMINE
  97. FLUOXETINE [Suspect]
     Active Substance: FLUOXETINE HYDROCHLORIDE
     Indication: Depression
  98. FLUOXETINE [Suspect]
     Active Substance: FLUOXETINE HYDROCHLORIDE
     Route: 065
  99. FLUOXETINE [Suspect]
     Active Substance: FLUOXETINE HYDROCHLORIDE
     Route: 065
  100. FLUOXETINE [Suspect]
     Active Substance: FLUOXETINE HYDROCHLORIDE
  101. LORAZEPAM [Suspect]
     Active Substance: LORAZEPAM
     Indication: Depression
  102. LORAZEPAM [Suspect]
     Active Substance: LORAZEPAM
     Indication: Major depression
     Route: 065
  103. LORAZEPAM [Suspect]
     Active Substance: LORAZEPAM
     Route: 065
  104. LORAZEPAM [Suspect]
     Active Substance: LORAZEPAM
  105. LEVOMEPROMAZINE [Suspect]
     Active Substance: LEVOMEPROMAZINE
     Indication: Depression
  106. LEVOMEPROMAZINE [Suspect]
     Active Substance: LEVOMEPROMAZINE
     Route: 065
  107. LEVOMEPROMAZINE [Suspect]
     Active Substance: LEVOMEPROMAZINE
     Route: 065
  108. LEVOMEPROMAZINE [Suspect]
     Active Substance: LEVOMEPROMAZINE
  109. MIRTAZAPINE [Suspect]
     Active Substance: MIRTAZAPINE
     Indication: Anticoagulant therapy
     Dosage: 5 MILLIGRAM, BID (2 EVERY 1 DAYS)
  110. MIRTAZAPINE [Suspect]
     Active Substance: MIRTAZAPINE
     Indication: Depression
     Dosage: 5 MILLIGRAM, BID (2 EVERY 1 DAYS)
  111. MIRTAZAPINE [Suspect]
     Active Substance: MIRTAZAPINE
     Dosage: 5 MILLIGRAM, BID (2 EVERY 1 DAYS)
     Route: 065
  112. MIRTAZAPINE [Suspect]
     Active Substance: MIRTAZAPINE
     Dosage: 5 MILLIGRAM, BID (2 EVERY 1 DAYS)
     Route: 065
  113. MIRTAZAPINE [Suspect]
     Active Substance: MIRTAZAPINE
  114. MIRTAZAPINE [Suspect]
     Active Substance: MIRTAZAPINE
  115. MIRTAZAPINE [Suspect]
     Active Substance: MIRTAZAPINE
     Route: 065
  116. MIRTAZAPINE [Suspect]
     Active Substance: MIRTAZAPINE
     Route: 065
  117. OLANZAPINE [Suspect]
     Active Substance: OLANZAPINE
     Indication: Depression
  118. OLANZAPINE [Suspect]
     Active Substance: OLANZAPINE
     Route: 065
  119. OLANZAPINE [Suspect]
     Active Substance: OLANZAPINE
     Route: 065
  120. OLANZAPINE [Suspect]
     Active Substance: OLANZAPINE
  121. PAROXETINE HYDROCHLORIDE [Suspect]
     Active Substance: PAROXETINE HYDROCHLORIDE
     Indication: Depression
  122. PAROXETINE HYDROCHLORIDE [Suspect]
     Active Substance: PAROXETINE HYDROCHLORIDE
     Route: 065
  123. PAROXETINE HYDROCHLORIDE [Suspect]
     Active Substance: PAROXETINE HYDROCHLORIDE
     Route: 065
  124. PAROXETINE HYDROCHLORIDE [Suspect]
     Active Substance: PAROXETINE HYDROCHLORIDE
  125. QUETIAPINE [Suspect]
     Active Substance: QUETIAPINE
     Indication: Depression
     Route: 065
  126. QUETIAPINE [Suspect]
     Active Substance: QUETIAPINE
  127. QUETIAPINE [Suspect]
     Active Substance: QUETIAPINE
  128. QUETIAPINE [Suspect]
     Active Substance: QUETIAPINE
     Route: 065
  129. QUETIAPINE [Suspect]
     Active Substance: QUETIAPINE
     Route: 048
  130. QUETIAPINE [Suspect]
     Active Substance: QUETIAPINE
  131. QUETIAPINE [Suspect]
     Active Substance: QUETIAPINE
  132. QUETIAPINE [Suspect]
     Active Substance: QUETIAPINE
     Route: 048
  133. RISPERIDONE [Suspect]
     Active Substance: RISPERIDONE
     Indication: Depression
  134. RISPERIDONE [Suspect]
     Active Substance: RISPERIDONE
     Route: 065
  135. RISPERIDONE [Suspect]
     Active Substance: RISPERIDONE
     Route: 065
  136. RISPERIDONE [Suspect]
     Active Substance: RISPERIDONE
  137. ZOLPIDEM [Suspect]
     Active Substance: ZOLPIDEM TARTRATE
     Indication: Depression
     Dosage: 10 MILLIGRAM, QD (DAILY)
  138. ZOLPIDEM [Suspect]
     Active Substance: ZOLPIDEM TARTRATE
     Dosage: 10 MILLIGRAM, QD (DAILY)
     Route: 065
  139. ZOLPIDEM [Suspect]
     Active Substance: ZOLPIDEM TARTRATE
     Dosage: 10 MILLIGRAM, QD (DAILY)
     Route: 065
  140. ZOLPIDEM [Suspect]
     Active Substance: ZOLPIDEM TARTRATE
     Dosage: 10 MILLIGRAM, QD (DAILY)
  141. ZOPICLONE [Suspect]
     Active Substance: ZOPICLONE
     Indication: Depression
  142. ZOPICLONE [Suspect]
     Active Substance: ZOPICLONE
     Route: 065
  143. ZOPICLONE [Suspect]
     Active Substance: ZOPICLONE
     Route: 065
  144. ZOPICLONE [Suspect]
     Active Substance: ZOPICLONE
  145. PANTOPRAZOLE SODIUM [Suspect]
     Active Substance: PANTOPRAZOLE SODIUM
     Indication: Gastrooesophageal reflux disease
     Dosage: 40 MILLIGRAM, QD (ONCE A DAY)
  146. PANTOPRAZOLE SODIUM [Suspect]
     Active Substance: PANTOPRAZOLE SODIUM
     Dosage: 40 MILLIGRAM, QD (ONCE A DAY)
     Route: 065
  147. PANTOPRAZOLE SODIUM [Suspect]
     Active Substance: PANTOPRAZOLE SODIUM
     Dosage: 40 MILLIGRAM, QD (ONCE A DAY)
     Route: 065
  148. PANTOPRAZOLE SODIUM [Suspect]
     Active Substance: PANTOPRAZOLE SODIUM
     Dosage: 40 MILLIGRAM, QD (ONCE A DAY)
  149. VORTIOXETINE [Suspect]
     Active Substance: VORTIOXETINE
     Indication: Product used for unknown indication
     Dosage: UNK, QD
  150. VORTIOXETINE [Suspect]
     Active Substance: VORTIOXETINE
     Dosage: UNK, QD
     Route: 065
  151. VORTIOXETINE [Suspect]
     Active Substance: VORTIOXETINE
     Dosage: UNK, QD
     Route: 065
  152. VORTIOXETINE [Suspect]
     Active Substance: VORTIOXETINE
     Dosage: UNK, QD
  153. BUPROPION [Suspect]
     Active Substance: BUPROPION
     Indication: Depression
  154. BUPROPION [Suspect]
     Active Substance: BUPROPION
     Indication: Major depression
  155. BUPROPION [Suspect]
     Active Substance: BUPROPION
     Route: 065
  156. BUPROPION [Suspect]
     Active Substance: BUPROPION
     Route: 065
  157. BUPROPION [Suspect]
     Active Substance: BUPROPION
     Dosage: 450 MILLIGRAM, QD
  158. BUPROPION [Suspect]
     Active Substance: BUPROPION
     Dosage: 450 MILLIGRAM, QD
  159. BUPROPION [Suspect]
     Active Substance: BUPROPION
     Dosage: 450 MILLIGRAM, QD
     Route: 065
  160. BUPROPION [Suspect]
     Active Substance: BUPROPION
     Dosage: 450 MILLIGRAM, QD
     Route: 065
  161. BUPROPION [Suspect]
     Active Substance: BUPROPION
     Dosage: 400 MILLIGRAM, QD
  162. BUPROPION [Suspect]
     Active Substance: BUPROPION
     Dosage: 400 MILLIGRAM, QD
     Route: 065
  163. BUPROPION [Suspect]
     Active Substance: BUPROPION
     Dosage: 400 MILLIGRAM, QD
  164. BUPROPION [Suspect]
     Active Substance: BUPROPION
     Dosage: 400 MILLIGRAM, QD
     Route: 065
  165. MIRTAZAPINE [Suspect]
     Active Substance: MIRTAZAPINE
     Indication: Anticoagulant therapy
     Dosage: 5 MILLIGRAM, BID
  166. MIRTAZAPINE [Suspect]
     Active Substance: MIRTAZAPINE
     Indication: Depression
     Dosage: 5 MILLIGRAM, BID
  167. MIRTAZAPINE [Suspect]
     Active Substance: MIRTAZAPINE
     Dosage: 5 MILLIGRAM, BID
     Route: 065
  168. MIRTAZAPINE [Suspect]
     Active Substance: MIRTAZAPINE
     Dosage: 5 MILLIGRAM, BID
     Route: 065
  169. MIRTAZAPINE [Suspect]
     Active Substance: MIRTAZAPINE
  170. MIRTAZAPINE [Suspect]
     Active Substance: MIRTAZAPINE
  171. MIRTAZAPINE [Suspect]
     Active Substance: MIRTAZAPINE
     Route: 065
  172. MIRTAZAPINE [Suspect]
     Active Substance: MIRTAZAPINE
     Route: 065
  173. DAYVIGO [Suspect]
     Active Substance: LEMBOREXANT
     Indication: Depression
  174. DAYVIGO [Suspect]
     Active Substance: LEMBOREXANT
     Route: 048
  175. DAYVIGO [Suspect]
     Active Substance: LEMBOREXANT
     Route: 048
  176. DAYVIGO [Suspect]
     Active Substance: LEMBOREXANT
  177. LEVOMEPROMAZINE [Suspect]
     Active Substance: LEVOMEPROMAZINE
     Indication: Depression
  178. LEVOMEPROMAZINE [Suspect]
     Active Substance: LEVOMEPROMAZINE
     Route: 065
  179. LEVOMEPROMAZINE [Suspect]
     Active Substance: LEVOMEPROMAZINE
     Route: 065
  180. LEVOMEPROMAZINE [Suspect]
     Active Substance: LEVOMEPROMAZINE
  181. MIRTAZAPINE [Suspect]
     Active Substance: MIRTAZAPINE
     Indication: Depression
  182. MIRTAZAPINE [Suspect]
     Active Substance: MIRTAZAPINE
     Route: 065
  183. MIRTAZAPINE [Suspect]
     Active Substance: MIRTAZAPINE
     Route: 065
  184. MIRTAZAPINE [Suspect]
     Active Substance: MIRTAZAPINE
  185. VORTIOXETINE HYDROBROMIDE [Suspect]
     Active Substance: VORTIOXETINE HYDROBROMIDE
     Indication: Product used for unknown indication
  186. VORTIOXETINE HYDROBROMIDE [Suspect]
     Active Substance: VORTIOXETINE HYDROBROMIDE
     Route: 065
  187. VORTIOXETINE HYDROBROMIDE [Suspect]
     Active Substance: VORTIOXETINE HYDROBROMIDE
     Route: 065
  188. VORTIOXETINE HYDROBROMIDE [Suspect]
     Active Substance: VORTIOXETINE HYDROBROMIDE
  189. QUETIAPINE [Suspect]
     Active Substance: QUETIAPINE
     Indication: Depression
  190. QUETIAPINE [Suspect]
     Active Substance: QUETIAPINE
     Route: 048
  191. QUETIAPINE [Suspect]
     Active Substance: QUETIAPINE
     Route: 048
  192. QUETIAPINE [Suspect]
     Active Substance: QUETIAPINE

REACTIONS (7)
  - Suicidal ideation [Recovered/Resolved]
  - Suicide attempt [Recovered/Resolved]
  - Condition aggravated [Recovered/Resolved]
  - Adverse drug reaction [Unknown]
  - Drug ineffective [Recovered/Resolved]
  - Off label use [Unknown]
  - Therapy non-responder [Unknown]
